FAERS Safety Report 22156472 (Version 2)
Quarter: 2023Q2

REPORT INFORMATION
  Report Type: Spontaneous
  Country: US (occurrence: US)
  Receive Date: 20230330
  Receipt Date: 20230405
  Transmission Date: 20230721
  Serious: No
  Sender: FDA-Public Use
  Company Number: US-BRISTOL-MYERS SQUIBB COMPANY-2023-045008

PATIENT
  Age: 60 Year
  Sex: Female

DRUGS (1)
  1. ZEPOSIA [Suspect]
     Active Substance: OZANIMOD HYDROCHLORIDE
     Indication: Colitis microscopic
     Dosage: FREQ: DAILY
     Route: 048
     Dates: start: 202211

REACTIONS (4)
  - Dizziness [Unknown]
  - Headache [Unknown]
  - Hypertension [Unknown]
  - Off label use [Unknown]
